FAERS Safety Report 21590868 (Version 2)
Quarter: 2023Q1

REPORT INFORMATION
  Report Type: Spontaneous
  Country: IT (occurrence: IT)
  Receive Date: 20221114
  Receipt Date: 20230112
  Transmission Date: 20230418
  Serious: Yes (Other)
  Sender: FDA-Public Use
  Company Number: IT-009507513-2211ITA003444

PATIENT
  Age: 66 Year
  Sex: Male

DRUGS (15)
  1. PEMBROLIZUMAB [Suspect]
     Active Substance: PEMBROLIZUMAB
     Indication: Oropharyngeal cancer
     Dosage: FLAT DOSE 200MG, EVERY 21 DAYS (Q3W), 5 CYCLES
     Dates: start: 202111, end: 202202
  2. PEMBROLIZUMAB [Suspect]
     Active Substance: PEMBROLIZUMAB
     Dosage: THE SIXTH COURSE/CYCLE
     Dates: start: 202203
  3. PEMBROLIZUMAB [Suspect]
     Active Substance: PEMBROLIZUMAB
     Dosage: MAINTENANCE IMMUNOTHERAPY ALONE
     Dates: start: 20220419
  4. PEMBROLIZUMAB [Suspect]
     Active Substance: PEMBROLIZUMAB
     Dosage: 100 MILLIGRAM, Q3W
     Dates: start: 20220509, end: 20220509
  5. PEMBROLIZUMAB [Suspect]
     Active Substance: PEMBROLIZUMAB
     Dosage: 100 MILLIGRAM, Q3W
     Dates: start: 20220509, end: 20220509
  6. PEMBROLIZUMAB [Suspect]
     Active Substance: PEMBROLIZUMAB
     Dosage: 100 MILLIGRAM, Q3W
     Dates: start: 20220620, end: 20220620
  7. PEMBROLIZUMAB [Suspect]
     Active Substance: PEMBROLIZUMAB
     Dosage: 100 MILLIGRAM, Q3W
     Dates: start: 20220620, end: 20220620
  8. PEMBROLIZUMAB [Suspect]
     Active Substance: PEMBROLIZUMAB
     Dosage: UNK UNK, Q3W
     Dates: start: 202208
  9. PEMBROLIZUMAB [Suspect]
     Active Substance: PEMBROLIZUMAB
     Dosage: 200 MILLIGRAM, Q3W
     Dates: start: 20221014, end: 20221014
  10. PEMBROLIZUMAB [Suspect]
     Active Substance: PEMBROLIZUMAB
     Dosage: 200 MILLIGRAM, Q3W
     Dates: start: 20221125, end: 20221125
  11. PEMBROLIZUMAB [Suspect]
     Active Substance: PEMBROLIZUMAB
     Dosage: 200 MILLIGRAM, Q3W
     Dates: start: 20221223, end: 20221223
  12. CISPLATIN [Suspect]
     Active Substance: CISPLATIN
     Indication: Oropharyngeal cancer
     Dosage: 100 MILLIGRAM/SQ. METER, EVERY 21 DAYS, 5 CYCLES
     Dates: start: 202111, end: 202202
  13. CISPLATIN [Suspect]
     Active Substance: CISPLATIN
     Dosage: THE SIXTH COURSE/CYCLE
     Dates: start: 202203
  14. FLUOROURACIL [Suspect]
     Active Substance: FLUOROURACIL
     Indication: Oropharyngeal cancer
     Dosage: 4000 MILLIGRAM/SQ. METER IN 96 HOURS , EVERY 21 DAYS (Q3W), 5 CYCLES
     Dates: start: 202111, end: 202202
  15. FLUOROURACIL [Suspect]
     Active Substance: FLUOROURACIL
     Dosage: THE SIXTH COURSE/CYCLE
     Dates: start: 202203

REACTIONS (6)
  - Thrombocytopenia [Recovered/Resolved]
  - Anaemia [Recovered/Resolved]
  - Paraesthesia [Not Recovered/Not Resolved]
  - Product use issue [Unknown]
  - Product use issue [Unknown]
  - Product use issue [Unknown]

NARRATIVE: CASE EVENT DATE: 20220101
